FAERS Safety Report 8396209-5 (Version None)
Quarter: 2012Q2

REPORT INFORMATION
  Report Type: 
  Country: None (occurrence: None)
  Receive Date: 20120530
  Receipt Date: 20120524
  Transmission Date: 20120825
  Serious: Yes (Hospitalization)
  Sender: FDA-Public Use
  Company Number: JP-GLAXOSMITHKLINE-B0804196A

PATIENT
  Sex: Male
  Weight: 16 kg

DRUGS (11)
  1. ZONISAMIDE [Concomitant]
     Indication: PARTIAL SEIZURES
     Dosage: 160MG PER DAY
     Route: 048
  2. LAMICTAL [Suspect]
     Indication: PARTIAL SEIZURES
     Dosage: 2MG PER DAY
     Route: 048
     Dates: start: 20090713, end: 20090727
  3. ONON [Concomitant]
     Route: 048
  4. L-CARTIN [Concomitant]
     Indication: PROPHYLAXIS
     Route: 048
  5. DEPAKENE [Concomitant]
     Indication: PARTIAL SEIZURES
     Dosage: 650MG PER DAY
     Route: 048
  6. PHENOBARBITAL TAB [Concomitant]
     Indication: PARTIAL SEIZURES
     Dosage: 50MG PER DAY
     Route: 048
  7. MUCODYNE [Concomitant]
     Route: 048
  8. TIZANIDINE HYDROCHLORIDE [Concomitant]
     Route: 048
  9. TOPIRAMATE [Concomitant]
     Indication: PARTIAL SEIZURES
     Dosage: 40MG PER DAY
     Route: 048
  10. MUCOSIL-10 [Concomitant]
     Route: 048
  11. POTASSIUM BROMIDE [Concomitant]
     Indication: PARTIAL SEIZURES
     Dosage: 1200MG PER DAY
     Route: 048

REACTIONS (1)
  - ABSCESS [None]
